FAERS Safety Report 20896031 (Version 3)
Quarter: 2023Q2

REPORT INFORMATION
  Report Type: Spontaneous
  Country: HN (occurrence: HN)
  Receive Date: 20220531
  Receipt Date: 20230622
  Transmission Date: 20230722
  Serious: Yes (Other)
  Sender: FDA-Public Use
  Company Number: HN-BRISTOL-MYERS SQUIBB COMPANY-2022-044866

PATIENT
  Age: 60 Year
  Sex: Female

DRUGS (3)
  1. SPRYCEL [Suspect]
     Active Substance: DASATINIB
     Indication: Chronic myeloid leukaemia
  2. SPRYCEL [Suspect]
     Active Substance: DASATINIB
  3. SPRYCEL [Suspect]
     Active Substance: DASATINIB

REACTIONS (5)
  - Urinary tract infection [Unknown]
  - Renal pain [Unknown]
  - Ovarian cyst [Unknown]
  - Platelet count decreased [Unknown]
  - Off label use [Unknown]
